FAERS Safety Report 9034826 (Version 1)
Quarter: 2013Q1

REPORT INFORMATION
  Report Type: Spontaneous
  Country: US (occurrence: None)
  Receive Date: 20130116
  Receipt Date: 20130116
  Transmission Date: 20140127
  Serious: Yes (Hospitalization)
  Sender: FDA-Public Use
  Company Number: None

PATIENT
  Sex: Female
  Weight: 59.55 kg

DRUGS (1)
  1. CARBOPLATIN [Suspect]

REACTIONS (27)
  - Aortic dissection [None]
  - Ovarian neoplasm [None]
  - Metabolic encephalopathy [None]
  - Urinary tract infection [None]
  - Faecaloma [None]
  - Faecal volume decreased [None]
  - Atelectasis [None]
  - Pulmonary oedema [None]
  - Chest X-ray abnormal [None]
  - Blood potassium decreased [None]
  - Blood chloride increased [None]
  - Blood albumin decreased [None]
  - Blood calcium decreased [None]
  - Pleural effusion [None]
  - Candida test positive [None]
  - Arthralgia [None]
  - Arthropathy [None]
  - Osteoarthritis [None]
  - Anaemia [None]
  - Platelet count decreased [None]
  - Arteriosclerosis [None]
  - Blood pressure inadequately controlled [None]
  - Mental status changes [None]
  - Aortic calcification [None]
  - Aortic arteriosclerosis [None]
  - Exostosis [None]
  - Muscle strain [None]
